FAERS Safety Report 6145810-8 (Version None)
Quarter: 2009Q2

REPORT INFORMATION
  Report Type: 
  Country: None (occurrence: None)
  Receive Date: 20090406
  Receipt Date: 20090406
  Transmission Date: 20091009
  Serious: Yes (Hospitalization, Disabling)
  Sender: FDA-Public Use
  Company Number: None

PATIENT
  Sex: Female
  Weight: 56.6996 kg

DRUGS (2)
  1. PENTOXIFYLLINE [Suspect]
     Indication: PAIN IN EXTREMITY
     Dosage: 1 TAB 3 TIMES A DAY
     Dates: start: 20090128
  2. PENTOXIFYLLINE [Suspect]
     Indication: PAIN IN EXTREMITY
     Dosage: 1 TAB 3 TIMES A DAY
     Dates: start: 20090129

REACTIONS (7)
  - ANOREXIA [None]
  - DIARRHOEA [None]
  - DIZZINESS [None]
  - DYSSTASIA [None]
  - HEART RATE INCREASED [None]
  - MUSCULAR WEAKNESS [None]
  - VOMITING [None]
